FAERS Safety Report 24588940 (Version 1)
Quarter: 2024Q4

REPORT INFORMATION
  Report Type: Spontaneous
  Country: IT (occurrence: IT)
  Receive Date: 20241107
  Receipt Date: 20241107
  Transmission Date: 20250115
  Serious: Yes (Hospitalization)
  Sender: MYLAN
  Company Number: IT-MYLANLABS-2024M1099306

PATIENT
  Age: 69 Year
  Sex: Male

DRUGS (6)
  1. FUROSEMIDE [Suspect]
     Active Substance: FUROSEMIDE
     Indication: Cardiac failure chronic
     Dosage: 250 MILLIGRAM, BID
     Route: 065
     Dates: start: 2021
  2. FUROSEMIDE [Suspect]
     Active Substance: FUROSEMIDE
     Indication: Chronic kidney disease
     Dosage: UNK (GRADUALLY REDUCED)
     Route: 065
  3. SPIRONOLACTONE [Suspect]
     Active Substance: SPIRONOLACTONE
     Indication: Cardiac failure chronic
     Dosage: 50 MILLIGRAM, QD
     Route: 065
     Dates: start: 2021
  4. SPIRONOLACTONE [Suspect]
     Active Substance: SPIRONOLACTONE
     Indication: Chronic kidney disease
     Dosage: UNK (GRADUALLY REDUCED)
     Route: 065
  5. METOLAZONE [Suspect]
     Active Substance: METOLAZONE
     Indication: Cardiac failure chronic
     Dosage: 5 MILLIGRAM, QD
     Route: 065
     Dates: start: 2021
  6. METOLAZONE [Suspect]
     Active Substance: METOLAZONE
     Indication: Chronic kidney disease
     Dosage: UNK (GRADUALLY REDUCED)
     Route: 065

REACTIONS (1)
  - Drug ineffective [Unknown]

NARRATIVE: CASE EVENT DATE: 20210101
